FAERS Safety Report 25916212 (Version 1)
Quarter: 2025Q4

REPORT INFORMATION
  Report Type: Spontaneous
  Country: EU (occurrence: EU)
  Receive Date: 20251014
  Receipt Date: 20251014
  Transmission Date: 20260118
  Serious: Yes (Other)
  Sender: HETERO
  Company Number: None

PATIENT
  Age: 64 Year
  Sex: Female

DRUGS (3)
  1. CLOPIDOGREL [Suspect]
     Active Substance: CLOPIDOGREL BISULFATE
     Indication: Acute myocardial infarction
     Dosage: 75 MILLIGRAM, Q.24H.
     Route: 048
     Dates: start: 20250227, end: 20250327
  2. ATORVASTATIN [Suspect]
     Active Substance: ATORVASTATIN
     Indication: Acute myocardial infarction
     Dosage: 80 MILLIGRAM, Q.24H.
     Route: 048
     Dates: start: 20250227, end: 20250319
  3. MOUNJARO [Suspect]
     Active Substance: TIRZEPATIDE
     Indication: Obesity
     Dosage: 7.5 MILLIGRAM, Q1W
     Route: 058
     Dates: start: 20241008, end: 20250225

REACTIONS (2)
  - Hyperbilirubinaemia [Recovered/Resolved]
  - Hepatitis cholestatic [Recovered/Resolved]

NARRATIVE: CASE EVENT DATE: 20250319
